FAERS Safety Report 12629992 (Version 2)
Quarter: 2016Q3

REPORT INFORMATION
  Report Type: Spontaneous
  Country: US (occurrence: US)
  Receive Date: 20160808
  Receipt Date: 20160812
  Transmission Date: 20161109
  Serious: Yes (Hospitalization, Other)
  Sender: FDA-Public Use
  Company Number: US-PFIZER INC-2016372564

PATIENT
  Age: 72 Year
  Sex: Female
  Weight: 48.53 kg

DRUGS (22)
  1. METOPROLOL. [Concomitant]
     Active Substance: METOPROLOL
     Dosage: 50 MG, DAILY
     Route: 048
     Dates: start: 20151016
  2. CIPROFLOXACIN. [Concomitant]
     Active Substance: CIPROFLOXACIN
     Dosage: 200 UNK,(400 MG= 200 MLINJECTION, IVPB, Q12HOUR / INFUSE OVER 1 HR, 200)
     Route: 042
     Dates: start: 20151009
  3. LACTATED RINGERS [Concomitant]
     Active Substance: CALCIUM CHLORIDE\POTASSIUM CHLORIDE\SODIUM CHLORIDE\SODIUM LACTATE
     Dosage: 125 ML, UNK (1,000 ML, BAG, IV, 125 ML/HR, INFUSE OVER: 8 HR)
     Route: 042
     Dates: start: 20151008
  4. METOPROLOL SUCCINATE. [Concomitant]
     Active Substance: METOPROLOL SUCCINATE
     Dosage: 50 MG, DAILY
     Route: 048
     Dates: start: 20151016
  5. FLAGYL [Suspect]
     Active Substance: METRONIDAZOLE\METRONIDAZOLE HYDROCHLORIDE
     Dosage: 100 ML, UNK
     Route: 042
     Dates: start: 20151008, end: 20151022
  6. FLAGYL [Suspect]
     Active Substance: METRONIDAZOLE\METRONIDAZOLE HYDROCHLORIDE
     Dosage: 100 ML, Q8H  (500 MG= 100 ML INJECTION, IVPB, Q8HOUR/ 100 ML/HR INFUSE)
     Route: 042
     Dates: start: 20151008
  7. FLAGYL [Suspect]
     Active Substance: METRONIDAZOLE\METRONIDAZOLE HYDROCHLORIDE
     Dosage: 100 ML, 3X/DAY  (500 MG= 100 ML INJECTION, IVPB, Q8HOUR/100 ML/HR  INFUSE OVER 1 HR)
     Route: 042
     Dates: start: 20151009
  8. ONDANSETRON [Concomitant]
     Active Substance: ONDANSETRON
     Indication: VOMITING
  9. CIPRO [Concomitant]
     Active Substance: CIPROFLOXACIN HYDROCHLORIDE
     Dosage: 500 MG, 2X/DAY (DURATION 8 DAY)
     Route: 048
     Dates: start: 20151014
  10. GABAPENTIN. [Concomitant]
     Active Substance: GABAPENTIN
     Dosage: UNK
  11. CIPROFLOXACIN. [Concomitant]
     Active Substance: CIPROFLOXACIN
     Dosage: 200 ML, SINGLE (400 MG = 200 ML INJECTION, IVPB, ONCE/200 ML/HR, INFUSE OVER 1 HR )
     Dates: start: 20151008
  12. MIRALAX [Concomitant]
     Active Substance: POLYETHYLENE GLYCOL 3350
     Dosage: 17 G, 2X/DAY (17 GM= 1 EA REC POWDER)
     Route: 048
     Dates: start: 20151014
  13. FLAGYL [Suspect]
     Active Substance: METRONIDAZOLE\METRONIDAZOLE HYDROCHLORIDE
     Indication: DIVERTICULITIS
     Dosage: UNK
     Dates: end: 20151022
  14. ACETAMINOPHEN AND CODEINE [Concomitant]
     Active Substance: ACETAMINOPHEN\CODEINE PHOSPHATE
     Indication: PAIN
     Dosage: UNK (ACETAMINOPHEN 300 MG/ CODEINE 30 MG, 1-2 TABLETS EVERY FOUR HOURS)
     Route: 048
  15. ATORVASTATIN [Concomitant]
     Active Substance: ATORVASTATIN
     Dosage: 20 MG, UNK
  16. FLAGYL [Suspect]
     Active Substance: METRONIDAZOLE\METRONIDAZOLE HYDROCHLORIDE
     Dosage: 100 ML, UNK  (500 MG= 100 ML INJECTION, IVPB, ONCE/ 100 ML/HR, INFUSE OVER 1 HR)
     Route: 042
     Dates: start: 20151008
  17. FLAGYL [Suspect]
     Active Substance: METRONIDAZOLE\METRONIDAZOLE HYDROCHLORIDE
     Dosage: 500 MG, 3X/DAY
     Route: 048
     Dates: start: 20151014
  18. XANAX [Concomitant]
     Active Substance: ALPRAZOLAM
     Dosage: UNK
  19. CIPROFLOXACIN. [Concomitant]
     Active Substance: CIPROFLOXACIN
     Dosage: 200 ML, 2X/DAY (400 MG= 200 ML INJECTION, IVPB, Q12HOUR/ 200 ML/HR/ INFUSE OVER 1 HR)
     Route: 042
     Dates: start: 20151009
  20. ONDANSETRON [Concomitant]
     Active Substance: ONDANSETRON
     Indication: NAUSEA
     Dosage: 2 UNK, UNK (4 MG = 2 ML INJECTION, IV PUSH, Q6HOUR, PRN )
     Route: 042
     Dates: start: 20151008
  21. AFRIN [Concomitant]
     Active Substance: OXYMETAZOLINE
     Indication: NASAL CONGESTION
     Dosage: UNK UNK, AS NEEDED (1 SPRAY SPRAY, NASAL, Q12HOUR, PRN )
     Route: 045
     Dates: start: 20151008, end: 20151011
  22. FLAGYL [Suspect]
     Active Substance: METRONIDAZOLE\METRONIDAZOLE HYDROCHLORIDE
     Dosage: 500 MG, 3X/DAY (X 7 DAY)
     Route: 048
     Dates: start: 20151016

REACTIONS (4)
  - Diverticulitis [Not Recovered/Not Resolved]
  - Hypoaesthesia [Not Recovered/Not Resolved]
  - Pain in extremity [Not Recovered/Not Resolved]
  - Neuropathy peripheral [Not Recovered/Not Resolved]

NARRATIVE: CASE EVENT DATE: 201510
